FAERS Safety Report 9377128 (Version 2)
Quarter: 2013Q3

REPORT INFORMATION
  Report Type: Spontaneous
  Country: US (occurrence: US)
  Receive Date: 20130701
  Receipt Date: 20130905
  Transmission Date: 20140515
  Serious: Yes (Other)
  Sender: FDA-Public Use
  Company Number: US-PFIZER INC-2013193005

PATIENT
  Age: 70 Year
  Sex: Female

DRUGS (1)
  1. PROPANOLOL HCL [Suspect]
     Indication: ARRHYTHMIA
     Dosage: 80 MG, 1X/DAY
     Route: 048
     Dates: start: 201306

REACTIONS (3)
  - Hypoacusis [Not Recovered/Not Resolved]
  - Abdominal discomfort [Not Recovered/Not Resolved]
  - Dizziness [Not Recovered/Not Resolved]
